FAERS Safety Report 17353803 (Version 1)
Quarter: 2020Q1

REPORT INFORMATION
  Report Type: Spontaneous
  Country: JP (occurrence: JP)
  Receive Date: 20200131
  Receipt Date: 20200131
  Transmission Date: 20200409
  Serious: Yes (Hospitalization)
  Sender: FDA-Public Use
  Company Number: JP-TEVA-2020-JP-001417J

PATIENT
  Age: 48 Year
  Sex: Female

DRUGS (1)
  1. RANITIDINE INJECTION 50MG ^TAIYO^ [Suspect]
     Active Substance: RANITIDINE
     Indication: PREMEDICATION
     Dosage: 50 MILLIGRAM DAILY;
     Route: 042
     Dates: start: 20181129, end: 20181214

REACTIONS (3)
  - Product use in unapproved indication [Unknown]
  - Shock [Recovered/Resolved]
  - Dyspnoea [Recovered/Resolved]

NARRATIVE: CASE EVENT DATE: 20181129
